FAERS Safety Report 16645810 (Version 1)
Quarter: 2019Q3

REPORT INFORMATION
  Report Type: Spontaneous
  Country: US (occurrence: US)
  Receive Date: 20190730
  Receipt Date: 20190730
  Transmission Date: 20191004
  Serious: No
  Sender: FDA-Public Use
  Company Number: US-APOTEX-2019AP017971

PATIENT
  Age: 68 Year
  Sex: Female

DRUGS (2)
  1. TIMOLOL. [Suspect]
     Active Substance: TIMOLOL
     Indication: EXFOLIATION GLAUCOMA
     Dosage: UNK
     Route: 065
  2. TRAVOPROST. [Suspect]
     Active Substance: TRAVOPROST
     Indication: EXFOLIATION GLAUCOMA
     Dosage: UNK, FOR SEVRAL YEARS
     Route: 065

REACTIONS (5)
  - Eye pain [Recovered/Resolved]
  - Photosensitivity reaction [Recovered/Resolved]
  - Reaction to excipient [Recovered/Resolved]
  - Keratopathy [Recovered/Resolved]
  - Conjunctival hyperaemia [Recovered/Resolved]
